FAERS Safety Report 16417174 (Version 5)
Quarter: 2019Q3

REPORT INFORMATION
  Report Type: Report from Study
  Country: US (occurrence: US)
  Receive Date: 20190611
  Receipt Date: 20190910
  Transmission Date: 20191004
  Serious: No
  Sender: FDA-Public Use
  Company Number: PHEH2019US022979

PATIENT
  Sex: Female

DRUGS (1)
  1. OMNITROPE [Suspect]
     Active Substance: SOMATROPIN
     Indication: PRODUCT USED FOR UNKNOWN INDICATION
     Dosage: 10 MG, (SIX TIMES A WEEK)
     Route: 058

REACTIONS (3)
  - Wrong device used [Unknown]
  - Device leakage [Unknown]
  - Incorrect dose administered [Unknown]
